FAERS Safety Report 25754049 (Version 1)
Quarter: 2025Q3

REPORT INFORMATION
  Report Type: Spontaneous
  Country: CN (occurrence: CN)
  Receive Date: 20250903
  Receipt Date: 20250903
  Transmission Date: 20251020
  Serious: Yes (Hospitalization, Other)
  Sender: BEIGENE
  Company Number: CN-ROCHE-10000028979

PATIENT
  Age: 69 Year
  Weight: 52 kg

DRUGS (27)
  1. TISLELIZUMAB [Suspect]
     Active Substance: TISLELIZUMAB
     Indication: Diffuse large B-cell lymphoma
  2. TISLELIZUMAB [Suspect]
     Active Substance: TISLELIZUMAB
  3. POLIVY [Suspect]
     Active Substance: POLATUZUMAB VEDOTIN-PIIQ
  4. GEMCITABINE [Suspect]
     Active Substance: GEMCITABINE
  5. RITUXIMAB [Suspect]
     Active Substance: RITUXIMAB
  6. OXALIPLATIN [Suspect]
     Active Substance: OXALIPLATIN
  7. URSODIOL [Concomitant]
     Active Substance: URSODIOL
  8. VANCOMYCIN HYDROCHLORIDE [Concomitant]
     Active Substance: VANCOMYCIN HYDROCHLORIDE
  9. METRONIDAZOLE [Concomitant]
     Active Substance: METRONIDAZOLE
  10. GLUTATHIONE [Concomitant]
     Active Substance: GLUTATHIONE
  11. DEXAMETHASONE SODIUM PHOSPHATE [Concomitant]
     Active Substance: DEXAMETHASONE SODIUM PHOSPHATE
  12. ENTECAVIR [Concomitant]
     Active Substance: ENTECAVIR
  13. POTASSIUM CHLORIDE [Concomitant]
     Active Substance: POTASSIUM CHLORIDE
  14. HUMAN IMMUNOGLOBULIN G [Concomitant]
     Active Substance: HUMAN IMMUNOGLOBULIN G
  15. AMINO ACIDS [Concomitant]
     Active Substance: AMINO ACIDS
  16. AMBROXOL HYDROCHLORIDE [Concomitant]
     Active Substance: AMBROXOL HYDROCHLORIDE
  17. MOXIFLOXACIN [Concomitant]
     Active Substance: MOXIFLOXACIN
  18. LEVOFLOXACIN [Concomitant]
     Active Substance: LEVOFLOXACIN
  19. BERBERINE [Concomitant]
     Active Substance: BERBERINE
  20. MEROPENEM [Concomitant]
     Active Substance: MEROPENEM
  21. OMEPRAZOLE [Concomitant]
     Active Substance: OMEPRAZOLE
  22. CEFOPERAZONE SODIUM [Concomitant]
     Active Substance: CEFOPERAZONE SODIUM
  23. METHYLPREDNISOLONE SODIUM SUCCINATE [Concomitant]
     Active Substance: METHYLPREDNISOLONE SODIUM SUCCINATE
  24. LOPERAMIDE HYDROCHLORIDE [Concomitant]
     Active Substance: LOPERAMIDE HYDROCHLORIDE
  25. PROMETHAZINE HYDROCHLORIDE [Concomitant]
     Active Substance: PROMETHAZINE HYDROCHLORIDE
  26. ALBUMIN HUMAN [Concomitant]
     Active Substance: ALBUMIN HUMAN
  27. BICYCLOL [Concomitant]
     Active Substance: BICYCLOL

REACTIONS (11)
  - Jaundice cholestatic [Unknown]
  - Hypocalcaemia [Unknown]
  - Neutrophil count decreased [Unknown]
  - Hypoalbuminaemia [Unknown]
  - Hypophosphataemia [Unknown]
  - White blood cell count decreased [Unknown]
  - Gamma-glutamyltransferase increased [Unknown]
  - Blood alkaline phosphatase increased [Unknown]
  - Platelet count decreased [Unknown]
  - Blood bilirubin increased [Unknown]
  - Off label use [Unknown]
